FAERS Safety Report 6279130-8 (Version None)
Quarter: 2009Q3

REPORT INFORMATION
  Report Type: 
  Country: None (occurrence: None)
  Receive Date: 20090720
  Receipt Date: 20090720
  Transmission Date: 20100115
  Serious: Yes (Life-Threatening, Hospitalization, Disabling)
  Sender: FDA-Public Use
  Company Number: None

PATIENT
  Age: 44 Year
  Sex: Female
  Weight: 72.5755 kg

DRUGS (1)
  1. FROVA [Suspect]
     Indication: MIGRAINE
     Dosage: 1 TO 2 TABLETS IN 24 HRS. AS NEEDED FOR HEAD PO
     Route: 048
     Dates: start: 20060930, end: 20090525

REACTIONS (6)
  - EAR PAIN [None]
  - HAEMORRHAGE [None]
  - MYOCARDIAL INFARCTION [None]
  - PAIN [None]
  - TOOTHACHE [None]
  - VASCULAR RUPTURE [None]
